FAERS Safety Report 13863878 (Version 3)
Quarter: 2017Q4

REPORT INFORMATION
  Report Type: Report from Study
  Country: GB (occurrence: GB)
  Receive Date: 20170814
  Receipt Date: 20171114
  Transmission Date: 20180320
  Serious: Yes (Hospitalization)
  Sender: FDA-Public Use
  Company Number: GB-GLAXOSMITHKLINE-GB2017GSK123770

PATIENT
  Sex: Male
  Weight: 77 kg

DRUGS (10)
  1. PREDNISOLONE. [Concomitant]
     Active Substance: PREDNISOLONE
     Indication: ASTHMA
  2. INTAL [Concomitant]
     Active Substance: CROMOLYN SODIUM
  3. SALBUTAMOL [Concomitant]
     Active Substance: ALBUTEROL
  4. MEPOLIZUMAB [Suspect]
     Active Substance: MEPOLIZUMAB
     Indication: ASTHMA
     Dosage: UNK DF, UNK
     Route: 042
     Dates: start: 20170531, end: 20170628
  5. MONTELUKAST [Concomitant]
     Active Substance: MONTELUKAST SODIUM
  6. UNIPHYLLIN [Concomitant]
     Active Substance: THEOPHYLLINE ANHYDROUS
  7. FLUTICASONE. [Concomitant]
     Active Substance: FLUTICASONE
  8. FOSTAIR [Concomitant]
     Active Substance: BECLOMETHASONE\FORMOTEROL
     Indication: ASTHMA
     Dosage: UNK
     Dates: start: 20111011
  9. EKLIRA [Concomitant]
     Active Substance: ACLIDINIUM BROMIDE
  10. SPIRIVA [Concomitant]
     Active Substance: TIOTROPIUM BROMIDE MONOHYDRATE

REACTIONS (2)
  - Pharyngeal paraesthesia [Recovered/Resolved]
  - Pharyngeal oedema [Recovered/Resolved]

NARRATIVE: CASE EVENT DATE: 20170628
